FAERS Safety Report 8619405-8 (Version None)
Quarter: 2012Q3

REPORT INFORMATION
  Report Type: 
  Country: None (occurrence: None)
  Receive Date: 20120816
  Receipt Date: 20120816
  Transmission Date: 20120928
  Serious: No
  Sender: FDA-Public Use
  Company Number: None

PATIENT
  Age: 41 Year
  Sex: Female
  Weight: 49.8957 kg

DRUGS (1)
  1. DILAUDID [Suspect]

REACTIONS (2)
  - HALLUCINATION, AUDITORY [None]
  - ABDOMINAL PAIN [None]
